FAERS Safety Report 5422210-7 (Version None)
Quarter: 2007Q3

REPORT INFORMATION
  Report Type: 
  Country: None (occurrence: None)
  Receive Date: 20070821
  Receipt Date: 20070821
  Transmission Date: 20080115
  Serious: Yes (Hospitalization, Other)
  Sender: FDA-Public Use
  Company Number: None

PATIENT
  Sex: Female

DRUGS (10)
  1. REVLIMID [Suspect]
     Indication: MULTIPLE MYELOMA
     Dosage: 25 MG DAILY X21D/28D PO
     Route: 048
     Dates: start: 20070521, end: 20070813
  2. REVLIMID [Suspect]
  3. ZOFRAN [Concomitant]
  4. ALLOPURINOL [Concomitant]
  5. ACYCLOVIR [Concomitant]
  6. WELLBUTRIN [Concomitant]
  7. MORPHINE [Concomitant]
  8. FAMOTIDINE [Concomitant]
  9. ZOMETA [Concomitant]
  10. DEXAMETHASONE 0.5MG TAB [Concomitant]

REACTIONS (5)
  - ANAEMIA [None]
  - LEUKOPENIA [None]
  - MALIGNANT NEOPLASM PROGRESSION [None]
  - MULTIPLE MYELOMA [None]
  - RENAL FAILURE ACUTE [None]
